FAERS Safety Report 9472825 (Version 1)
Quarter: 2013Q3

REPORT INFORMATION
  Report Type: Spontaneous
  Country: GR (occurrence: GR)
  Receive Date: 20130823
  Receipt Date: 20130823
  Transmission Date: 20140515
  Serious: Yes (Other)
  Sender: FDA-Public Use
  Company Number: PHHY2013GR091139

PATIENT
  Sex: Male

DRUGS (3)
  1. STALEVO [Suspect]
     Dosage: UNK UKN, UNK
  2. INSULIN [Concomitant]
     Dosage: UNK UKN, UNK
  3. NEUROCIL [Concomitant]
     Dosage: UNK UKN, UNK

REACTIONS (1)
  - Blood iron decreased [Unknown]
